FAERS Safety Report 13754455 (Version 1)
Quarter: 2017Q3

REPORT INFORMATION
  Report Type: Spontaneous
  Country: US (occurrence: US)
  Receive Date: 20170714
  Receipt Date: 20170714
  Transmission Date: 20171127
  Serious: Yes (Disabling)
  Sender: FDA-Public Use
  Company Number: None

PATIENT
  Age: 61 Year
  Sex: Male
  Weight: 59.02 kg

DRUGS (9)
  1. TAMSULOSIN [Concomitant]
     Active Substance: TAMSULOSIN
  2. DULOXETINE 60MG [Suspect]
     Active Substance: DULOXETINE
     Dosage: 1 PILLS
     Route: 048
  3. BUPROPION 150MG [Suspect]
     Active Substance: BUPROPION HYDROCHLORIDE
  4. LISINOPRIL. [Concomitant]
     Active Substance: LISINOPRIL
  5. ATROVASTATIN [Concomitant]
     Active Substance: ATORVASTATIN CALCIUM
  6. VITAMIN C [Concomitant]
     Active Substance: ASCORBIC ACID
  7. QUETIAPINE 400MG [Suspect]
     Active Substance: QUETIAPINE
  8. OMEPRAZOLE. [Concomitant]
     Active Substance: OMEPRAZOLE
  9. CHLORTHAL [Concomitant]

REACTIONS (3)
  - Abdominal discomfort [None]
  - Asthenia [None]
  - Overweight [None]

NARRATIVE: CASE EVENT DATE: 20160510
